FAERS Safety Report 17424243 (Version 2)
Quarter: 2020Q2

REPORT INFORMATION
  Report Type: Report from Study
  Country: None (occurrence: DE)
  Receive Date: 20200217
  Receipt Date: 20200601
  Transmission Date: 20200713
  Serious: Yes (Hospitalization)
  Sender: FDA-Public Use
  Company Number: DE-ABBVIE-20K-062-3278580-00

PATIENT
  Age: 68 Year
  Sex: Male
  Weight: 74 kg

DRUGS (8)
  1. IMBRUVICA [Suspect]
     Active Substance: IBRUTINIB
     Route: 048
     Dates: start: 20191011, end: 20191103
  2. METOPROLOL. [Concomitant]
     Active Substance: METOPROLOL
     Indication: PRODUCT USED FOR UNKNOWN INDICATION
     Dates: start: 20180816
  3. IMBRUVICA [Suspect]
     Active Substance: IBRUTINIB
     Route: 048
     Dates: start: 20200501
  4. IMBRUVICA [Suspect]
     Active Substance: IBRUTINIB
     Route: 048
     Dates: start: 20200111, end: 20200122
  5. IMBRUVICA [Suspect]
     Active Substance: IBRUTINIB
     Route: 048
     Dates: start: 20191114, end: 20191203
  6. IMBRUVICA [Suspect]
     Active Substance: IBRUTINIB
     Route: 048
     Dates: start: 20191216, end: 20191228
  7. IMBRUVICA [Suspect]
     Active Substance: IBRUTINIB
     Indication: CHRONIC LYMPHOCYTIC LEUKAEMIA
     Route: 048
     Dates: start: 20180731, end: 20191003
  8. IMBRUVICA [Suspect]
     Active Substance: IBRUTINIB
     Route: 048
     Dates: start: 20200206, end: 20200214

REACTIONS (3)
  - Fibrosarcoma metastatic [Recovered/Resolved]
  - Cholecystitis acute [Recovered/Resolved]
  - Neoplasm [Recovered/Resolved]

NARRATIVE: CASE EVENT DATE: 20191105
